FAERS Safety Report 7656859-8 (Version None)
Quarter: 2011Q3

REPORT INFORMATION
  Report Type: 
  Country: None (occurrence: None)
  Receive Date: 20110802
  Receipt Date: 20110719
  Transmission Date: 20111222
  Serious: Yes (Other)
  Sender: FDA-Public Use
  Company Number: 1000022530

PATIENT
  Age: 84 Year
  Sex: Male

DRUGS (10)
  1. SIMVASTATIN (SIMVASTATIN) (SIMVASATATIN) [Concomitant]
  2. SERETIDE (SALMETEROL, FLUTICASONE) (INHALANT) (SALMETEROL, FLUTICASONE [Concomitant]
  3. PREDNISONE [Suspect]
     Dosage: 30 MG
     Dates: start: 20110217
  4. PAROXETINE (PAROXETINE) (PAROXETINE) [Concomitant]
  5. SPIRVIA (TIOTROPIUM BROMIDE) (INHALANT) (TIOTROPIUM BROMIDE) [Concomitant]
  6. OMEPRAZOLE [Concomitant]
  7. ADIRO (ACETYLSALICYLIC ACID (ACETYLSALICYLIC ACID) [Concomitant]
  8. ATROVENT (IPRATROPIUM BROMIDE (INHALANT) (IPRATROPIUM BROMIDE) [Concomitant]
  9. VENTOLINE (SALBUTAMOL) (INHALANT) (SALBUTAMOL) [Concomitant]
  10. ROFLUMILAST (ROFLUMILAST) (TABLETS) [Suspect]
     Indication: CHRONIC OBSTRUCTIVE PULMONARY DISEASE
     Dosage: 500 MCG (500 MCG, 1 IN 1 D), ORAL
     Route: 048
     Dates: start: 20110404, end: 20110409

REACTIONS (5)
  - VOMITING [None]
  - CONFUSIONAL STATE [None]
  - DISORIENTATION [None]
  - DECREASED APPETITE [None]
  - DEPRESSED MOOD [None]
